FAERS Safety Report 5496798-4 (Version None)
Quarter: 2007Q4

REPORT INFORMATION
  Report Type: 
  Country: None (occurrence: None)
  Receive Date: 20071025
  Receipt Date: 20070912
  Transmission Date: 20080405
  Serious: No
  Sender: FDA-Public Use
  Company Number: A0673036A

PATIENT
  Age: 73 Year
  Sex: Female

DRUGS (8)
  1. ADVAIR DISKUS 100/50 [Suspect]
     Indication: ASTHMA
     Dosage: 1PUFF TWICE PER DAY
     Route: 055
     Dates: start: 20070816
  2. LUNESTA [Concomitant]
  3. MULTI-VITAMIN [Concomitant]
  4. CALCIUM [Concomitant]
  5. VITAMIN E [Concomitant]
  6. ASCORBIC ACID [Concomitant]
  7. POTASSIUM CHLORIDE [Concomitant]
  8. B VITAMIN [Concomitant]

REACTIONS (1)
  - MUSCLE SPASMS [None]
